FAERS Safety Report 12062558 (Version 1)
Quarter: 2016Q1

REPORT INFORMATION
  Report Type: Other
  Country: GB (occurrence: GB)
  Receive Date: 20160210
  Receipt Date: 20160210
  Transmission Date: 20160526
  Serious: Yes (Hospitalization)
  Sender: FDA-Public Use
  Company Number: GB-MYLANLABS-2016M1004770

PATIENT

DRUGS (14)
  1. LOPERAMIDE [Concomitant]
     Active Substance: LOPERAMIDE
     Dosage: AS DIRECTED.
     Dates: start: 20150912
  2. CODEINE PHOSPHATE [Concomitant]
     Active Substance: CODEINE PHOSPHATE
     Indication: PAIN
     Dosage: 1 DF, QID
     Dates: start: 20150912
  3. QUININE [Concomitant]
     Active Substance: QUININE
     Dosage: 1 DF, QD (AT NIGHT.)
     Dates: start: 20150912
  4. CHLORHEXIDINE GLUCONATE. [Concomitant]
     Active Substance: CHLORHEXIDINE GLUCONATE
     Dosage: 1 DF, BID
     Dates: start: 20160120
  5. ISPAGHULA EXTRACT\PSYLLIUM [Concomitant]
     Active Substance: PLANTAGO OVATA SEED\PLANTAGO SEED
     Dosage: HALF SACHET EVERY DAY.
     Dates: start: 20150912
  6. OLANZAPINE. [Suspect]
     Active Substance: OLANZAPINE
     Dosage: UNK
     Dates: start: 20151215
  7. IPRATROPIUM BROMIDE. [Concomitant]
     Active Substance: IPRATROPIUM BROMIDE
     Dosage: 1-2 SPRAYS THREE TIMES DAILY WHEN REQUIRED.
     Dates: start: 20150912
  8. LANSOPRAZOLE. [Concomitant]
     Active Substance: LANSOPRAZOLE
     Dosage: 1 D28
     Dates: start: 20150912, end: 20151110
  9. CHOLINE SALICYLATE [Concomitant]
     Active Substance: CHOLINE SALICYLATE
     Dosage: USE AS DIRECTED.
     Dates: start: 20160120
  10. AMITRIPTYLINE HYDROCHLORIDE. [Concomitant]
     Active Substance: AMITRIPTYLINE HYDROCHLORIDE
     Dosage: 3 DF, QD (AT NIGHT)
     Dates: start: 20150912, end: 20151110
  11. NITROFURANTOIN. [Concomitant]
     Active Substance: NITROFURANTOIN
     Indication: PROPHYLAXIS URINARY TRACT INFECTION
     Dosage: 1 DF, QD (AT NIGHT)
     Dates: start: 20150912
  12. PARACETAMOL + FOSFATO DE CODEINA [Concomitant]
     Dosage: ONE OR TWO FOUR TIMES A DAY AS REQUIRED.
     Dates: start: 20150912
  13. PEPPERMINT OIL [Concomitant]
     Active Substance: PEPPERMINT OIL
     Dosage: 1 DF, TID
     Dates: start: 20150912
  14. INTAL [Concomitant]
     Active Substance: CROMOLYN SODIUM
     Dosage: 1 DF, QID (AS NECESSARY)
     Dates: start: 20130522

REACTIONS (4)
  - Hallucination, auditory [Unknown]
  - Tardive dyskinesia [Recovered/Resolved]
  - Confusional state [Unknown]
  - Persecutory delusion [Unknown]

NARRATIVE: CASE EVENT DATE: 20151215
